FAERS Safety Report 8506084-3 (Version None)
Quarter: 2012Q3

REPORT INFORMATION
  Report Type: 
  Country: None (occurrence: None)
  Receive Date: 20120712
  Receipt Date: 20120709
  Transmission Date: 20120928
  Serious: Yes (Other)
  Sender: FDA-Public Use
  Company Number: CN-BAYER-2012-068215

PATIENT
  Age: 31 Year
  Sex: Female
  Weight: 60 kg

DRUGS (2)
  1. ADALAT [Concomitant]
     Indication: HYPERTENSION
     Dosage: UNK
     Dates: start: 20110214
  2. ULTRAVIST 370 [Suspect]
     Indication: COMPUTERISED TOMOGRAM
     Dosage: 100 ML, ONCE
     Route: 041
     Dates: start: 20110214, end: 20110214

REACTIONS (9)
  - LOSS OF CONSCIOUSNESS [None]
  - CENTRAL NERVOUS SYSTEM STIMULATION [None]
  - PULSE PRESSURE DECREASED [None]
  - BLOOD PRESSURE IMMEASURABLE [None]
  - ANAPHYLACTIC SHOCK [None]
  - CEREBRAL INFARCTION [None]
  - PUPILS UNEQUAL [None]
  - TACHYPNOEA [None]
  - EXTENSOR PLANTAR RESPONSE [None]
